FAERS Safety Report 20346855 (Version 1)
Quarter: 2022Q1

REPORT INFORMATION
  Report Type: Spontaneous
  Country: None (occurrence: US)
  Receive Date: 20220118
  Receipt Date: 20220118
  Transmission Date: 20220423
  Serious: Yes (Other)
  Sender: FDA-Public Use
  Company Number: US-Akron, Inc.-2124042

PATIENT
  Age: 23 Year
  Sex: Female

DRUGS (1)
  1. HYDRALAZINE HYDROCHLORIDE [Suspect]
     Active Substance: HYDRALAZINE HYDROCHLORIDE

REACTIONS (5)
  - Swelling face [Unknown]
  - Abdominal distension [Unknown]
  - Oedema peripheral [Unknown]
  - Palpitations [Unknown]
  - Cardiac disorder [Unknown]
